FAERS Safety Report 11366669 (Version 1)
Quarter: 2015Q3

REPORT INFORMATION
  Report Type: Spontaneous
  Country: US (occurrence: US)
  Receive Date: 20150811
  Receipt Date: 20150811
  Transmission Date: 20151125
  Serious: No
  Sender: FDA-Public Use
  Company Number: US-ELI_LILLY_AND_COMPANY-US201303001381

PATIENT
  Age: 56 Year
  Sex: Male
  Weight: 95.24 kg

DRUGS (1)
  1. AXIRON [Suspect]
     Active Substance: TESTOSTERONE
     Indication: BLOOD TESTOSTERONE DECREASED
     Dosage: 30 MG, UNK
     Dates: start: 20130204, end: 20130226

REACTIONS (1)
  - Dermatitis allergic [Recovered/Resolved]
